FAERS Safety Report 4465838-3 (Version None)
Quarter: 2004Q3

REPORT INFORMATION
  Report Type: 
  Country: None (occurrence: None)
  Receive Date: 20040917
  Receipt Date: 20040813
  Transmission Date: 20050211
  Serious: No
  Sender: FDA-Public Use
  Company Number: US-JNJFOC-20040805350

PATIENT
  Age: 43 Year
  Sex: Female
  Weight: 61.2356 kg

DRUGS (5)
  1. ORTHO EVRA [Suspect]
     Indication: CONTRACEPTION
     Dosage: 1 DOSE(S), 3 IN 4 WEEK, TRANSDERMAL
     Route: 062
  2. WELLBUTRIN [Concomitant]
  3. ADDERALL (OBETROL) [Concomitant]
  4. SEROQUEL [Concomitant]
  5. TRILIPTAL (OXCARBAZEPINE) [Concomitant]

REACTIONS (1)
  - METRORRHAGIA [None]
